FAERS Safety Report 7343826-7 (Version None)
Quarter: 2011Q1

REPORT INFORMATION
  Report Type: 
  Country: None (occurrence: None)
  Receive Date: 20110310
  Receipt Date: 20110301
  Transmission Date: 20110831
  Serious: Yes (Hospitalization, Other)
  Sender: FDA-Public Use
  Company Number: ES-PFIZER INC-2011042927

PATIENT
  Age: 75 Year
  Sex: Male

DRUGS (8)
  1. VARENICLINE TARTRATE [Suspect]
     Dosage: 0.5 MG, 2X/DAY
  2. PERINDOPRIL [Concomitant]
     Dosage: 4 MG, UNK
  3. DOXAZOSIN [Concomitant]
     Dosage: 8 MG, UNK
  4. SIMVASTATIN [Concomitant]
     Dosage: 40 MG, UNK
  5. OMEPRAZOLE [Concomitant]
     Dosage: 20 MG, UNK
  6. METFORMIN [Concomitant]
     Dosage: 425 MG, UNK
  7. AMLODIPINE [Concomitant]
     Dosage: 5 MG, UNK
  8. ACETYLSALICYLIC ACID [Concomitant]
     Dosage: 100 MG, UNK

REACTIONS (1)
  - ILEUS PARALYTIC [None]
